FAERS Safety Report 5233260-8 (Version None)
Quarter: 2007Q1

REPORT INFORMATION
  Report Type: 
  Country: None (occurrence: None)
  Receive Date: 20070206
  Receipt Date: 20070114
  Transmission Date: 20070707
  Serious: No
  Sender: FDA-Public Use
  Company Number: 070102408

PATIENT
  Age: 56 Year
  Sex: Male
  Weight: 65.7716 kg

DRUGS (2)
  1. MUCINEX DM [Suspect]
     Indication: COUGH
     Dosage: 2TABL, 2 DOSES, ORAL
     Route: 048
     Dates: start: 20061207, end: 20061219
  2. ANACIN [Concomitant]

REACTIONS (7)
  - CHILLS [None]
  - DIZZINESS [None]
  - FALL [None]
  - FEELING ABNORMAL [None]
  - JAW FRACTURE [None]
  - LOSS OF CONSCIOUSNESS [None]
  - MOUTH INJURY [None]
